FAERS Safety Report 23109623 (Version 1)
Quarter: 2023Q4

REPORT INFORMATION
  Report Type: Spontaneous
  Country: CA (occurrence: CA)
  Receive Date: 20231026
  Receipt Date: 20231026
  Transmission Date: 20240110
  Serious: Yes (Hospitalization, Other)
  Sender: FDA-Public Use
  Company Number: CA-009507513-2310CAN010843

PATIENT
  Age: 3 Decade
  Sex: Female

DRUGS (1)
  1. INVANZ [Suspect]
     Active Substance: ERTAPENEM SODIUM
     Indication: Citrobacter infection
     Dosage: UNK, QD
     Route: 042

REACTIONS (4)
  - Drug ineffective [Unknown]
  - Erythema induratum [Unknown]
  - Lymph node tuberculosis [Unknown]
  - Swelling [Unknown]
